FAERS Safety Report 6148934-4 (Version None)
Quarter: 2009Q2

REPORT INFORMATION
  Report Type: 
  Country: None (occurrence: None)
  Receive Date: 20090406
  Receipt Date: 20090323
  Transmission Date: 20091009
  Serious: Yes (Other)
  Sender: FDA-Public Use
  Company Number: GXKR2009CA03771

PATIENT
  Age: 52 Year
  Sex: Male

DRUGS (4)
  1. DEXAMETHASONE [Suspect]
     Indication: INFLAMMATION
     Dosage: TOPICAL; 1 DRP, Q2H, TOPICAL
     Route: 061
  2. MOXIFLOXACIN (MOXIFLOXACIN), 0.5 [Concomitant]
  3. LATANOPROST [Concomitant]
  4. DORZOLAMIDE HYDROCHLORIDE W/TIMOLOL MALEATE (DORZOLAMIDE HYDROCHLORIDE [Concomitant]

REACTIONS (4)
  - CORNEAL OEDEMA [None]
  - INTRAOCULAR PRESSURE INCREASED [None]
  - KERATITIS [None]
  - OEDEMA [None]
